FAERS Safety Report 7078244-2 (Version None)
Quarter: 2010Q4

REPORT INFORMATION
  Report Type: 
  Country: None (occurrence: None)
  Receive Date: 20101101
  Receipt Date: 20101101
  Transmission Date: 20110411
  Serious: No
  Sender: FDA-Public Use
  Company Number: None

PATIENT
  Age: 89 Year
  Sex: Female
  Weight: 46.2669 kg

DRUGS (1)
  1. PRAVASTATIN SODIUM [Suspect]
     Indication: EYE DISORDER
     Dosage: 40 MG TAB. ONCE A DAY ORAL
     Route: 048
     Dates: start: 20100501

REACTIONS (2)
  - MUSCLE SPASMS [None]
  - VISUAL ACUITY REDUCED [None]
